FAERS Safety Report 25335865 (Version 1)
Quarter: 2025Q2

REPORT INFORMATION
  Report Type: Spontaneous
  Country: US (occurrence: None)
  Receive Date: 20250519
  Receipt Date: 20250519
  Transmission Date: 20250716
  Serious: No
  Sender: FDA-CTU
  Company Number: None

PATIENT
  Age: 49 Year
  Sex: Female
  Weight: 123.3 kg

DRUGS (1)
  1. TIRZEPATIDE [Suspect]
     Active Substance: TIRZEPATIDE
     Indication: Obesity
     Route: 030

REACTIONS (3)
  - Appetite disorder [None]
  - Treatment failure [None]
  - Product compounding quality issue [None]

NARRATIVE: CASE EVENT DATE: 20250307
